FAERS Safety Report 17142334 (Version 1)
Quarter: 2019Q4

REPORT INFORMATION
  Report Type: Spontaneous
  Country: DE (occurrence: DE)
  Receive Date: 20191211
  Receipt Date: 20191211
  Transmission Date: 20200122
  Serious: Yes (Other)
  Sender: FDA-Public Use
  Company Number: DE-MYLANLABS-2019M1120261

PATIENT
  Age: 67 Year
  Sex: Male
  Weight: 75 kg

DRUGS (4)
  1. THEOPHYLLIN [Concomitant]
     Active Substance: THEOPHYLLINE ANHYDROUS
     Dosage: UNK
     Dates: start: 2017
  2. ESOMEPRAZOL                        /01479301/ [Concomitant]
     Active Substance: ESOMEPRAZOLE
     Dosage: UNK
     Dates: start: 2017
  3. CANDESARTAN CILEXETIL MYLAN 16 MG, TABLETTEN [Suspect]
     Active Substance: CANDESARTAN CILEXETIL
     Indication: BLOOD PRESSURE INCREASED
     Dosage: 16 MILLIGRAM, QD 1-0-0
     Dates: start: 20190715, end: 20190717
  4. BERODUAL [Concomitant]
     Active Substance: FENOTEROL HYDROBROMIDE\IPRATROPIUM BROMIDE
     Dosage: UNK
     Dates: start: 2017

REACTIONS (3)
  - Bradycardia [Recovering/Resolving]
  - Arrhythmia [Recovering/Resolving]
  - Product substitution issue [Unknown]

NARRATIVE: CASE EVENT DATE: 20190715
